FAERS Safety Report 7938115-3 (Version None)
Quarter: 2011Q4

REPORT INFORMATION
  Report Type: 
  Country: None (occurrence: None)
  Receive Date: 20111123
  Receipt Date: 20110823
  Transmission Date: 20120403
  Serious: No
  Sender: FDA-Public Use
  Company Number: US-BRISTOL-MYERS SQUIBB COMPANY-15994999

PATIENT
  Age: 49 Year
  Sex: Female

DRUGS (3)
  1. GLYBURIDE [Concomitant]
  2. ONGLYZA [Suspect]
  3. MULTI-VITAMINS [Concomitant]

REACTIONS (1)
  - ALOPECIA [None]
